FAERS Safety Report 8179749-3 (Version None)
Quarter: 2012Q1

REPORT INFORMATION
  Report Type: 
  Country: None (occurrence: None)
  Receive Date: 20120302
  Receipt Date: 20120222
  Transmission Date: 20120608
  Serious: Yes (Other)
  Sender: FDA-Public Use
  Company Number: US-BAYER-2011-063419

PATIENT
  Age: 38 Year
  Sex: Female
  Weight: 78.005 kg

DRUGS (10)
  1. DROSPIRENONE AND ETHINYL ESTRADIOL [Suspect]
     Dosage: UNK
     Route: 048
     Dates: start: 20080701, end: 20090801
  2. SINGULAIR [Concomitant]
     Dosage: 10 MG, UNK
     Route: 048
     Dates: start: 20090630
  3. TUSSIONEX [Concomitant]
     Dosage: UNK
     Route: 048
     Dates: start: 20090623
  4. ACIPHEX [Concomitant]
     Dosage: 20 MG, UNK
     Route: 048
     Dates: start: 20090709
  5. YASMIN [Suspect]
     Dosage: UNK
     Route: 048
     Dates: start: 20051101, end: 20080701
  6. DIPHENHYDRAMINE HCL [Concomitant]
     Dosage: 50 MG, UNK
     Route: 048
     Dates: start: 20090709
  7. LEVAQUIN [Concomitant]
     Dosage: 500 MG, UNK
     Route: 048
     Dates: start: 20090623
  8. PREDNISONE TAB [Concomitant]
     Dosage: 20 MG, UNK
     Route: 048
     Dates: start: 20090630
  9. RANITIDINE [Concomitant]
     Dosage: 150 MG, UNK
     Route: 048
     Dates: start: 20090709
  10. ALPRAZOLAM [Concomitant]
     Dosage: 0.5 MG, UNK
     Route: 048
     Dates: start: 20090808

REACTIONS (8)
  - INJURY [None]
  - DYSPEPSIA [None]
  - EMOTIONAL DISTRESS [None]
  - CHOLECYSTITIS CHRONIC [None]
  - GALLBLADDER DISORDER [None]
  - PROCEDURAL PAIN [None]
  - CHOLELITHIASIS [None]
  - ABDOMINAL PAIN [None]
